FAERS Safety Report 14836815 (Version 1)
Quarter: 2018Q2

REPORT INFORMATION
  Report Type: Spontaneous
  Country: US (occurrence: US)
  Receive Date: 20180502
  Receipt Date: 20180502
  Transmission Date: 20180711
  Serious: No
  Sender: FDA-Public Use
  Company Number: US-BAYER-2018-078260

PATIENT
  Age: 79 Year
  Sex: Female
  Weight: 77.96 kg

DRUGS (1)
  1. MIRALAX [Suspect]
     Active Substance: POLYETHYLENE GLYCOL 3350
     Indication: GASTROINTESTINAL DISORDER
     Dosage: 17 G, UNK
     Route: 048
     Dates: start: 20180412

REACTIONS (4)
  - Product use issue [Unknown]
  - Bowel movement irregularity [Unknown]
  - Infrequent bowel movements [Unknown]
  - Frequent bowel movements [Unknown]
